FAERS Safety Report 18270737 (Version 1)
Quarter: 2020Q3

REPORT INFORMATION
  Report Type: Spontaneous
  Country: FR (occurrence: FR)
  Receive Date: 20200916
  Receipt Date: 20200916
  Transmission Date: 20201103
  Serious: Yes (Hospitalization)
  Sender: FDA-Public Use
  Company Number: FR-TEVA-2020-FR-1826798

PATIENT
  Age: 1 Year
  Sex: Female

DRUGS (10)
  1. AMIKACINE [Concomitant]
     Active Substance: AMIKACIN
     Indication: FEBRILE BONE MARROW APLASIA
     Dosage: 15MG/KG
     Route: 042
     Dates: start: 20200615, end: 20200618
  2. AMBISOME [Concomitant]
     Active Substance: AMPHOTERICIN B
     Indication: FEBRILE BONE MARROW APLASIA
     Dosage: 35MG
     Route: 042
     Dates: start: 20200622, end: 20200710
  3. ONDANSETRON [Concomitant]
     Active Substance: ONDANSETRON
     Indication: NAUSEA
     Route: 042
     Dates: start: 20200606
  4. PARACETAMOL [Concomitant]
     Active Substance: ACETAMINOPHEN
     Indication: PYREXIA
     Route: 042
     Dates: start: 20200606
  5. PANTOPRAZOLE [Concomitant]
     Active Substance: PANTOPRAZOLE
     Dosage: 10MG
     Route: 042
     Dates: start: 20200621
  6. BACTRIM [Concomitant]
     Active Substance: SULFAMETHOXAZOLE\TRIMETHOPRIM
     Indication: PROPHYLAXIS
     Dosage: 840MG
     Route: 048
     Dates: start: 20200606, end: 20200701
  7. TAZOCILLINE [Suspect]
     Active Substance: PIPERACILLIN SODIUM\TAZOBACTAM SODIUM
     Indication: FEBRILE BONE MARROW APLASIA
     Dosage: 100MG/KG
     Route: 048
     Dates: start: 20200615, end: 20200624
  8. GENTAMICINE [Concomitant]
     Active Substance: GENTAMICIN
     Dosage: 60MG
     Route: 048
     Dates: start: 20200606
  9. VANCOMYCINE [Suspect]
     Active Substance: VANCOMYCIN
     Indication: FEBRILE BONE MARROW APLASIA
     Dosage: 50MG/KG
     Route: 042
     Dates: start: 20200618, end: 20200624
  10. SPASFON [Concomitant]
     Indication: ABDOMINAL PAIN
     Dosage: 20MG
     Route: 042

REACTIONS (1)
  - Rash papular [Recovering/Resolving]

NARRATIVE: CASE EVENT DATE: 20200624
